FAERS Safety Report 6838772-9 (Version None)
Quarter: 2010Q3

REPORT INFORMATION
  Report Type: 
  Country: None (occurrence: None)
  Receive Date: 20100713
  Receipt Date: 20070706
  Transmission Date: 20110219
  Serious: Yes (Hospitalization, Other)
  Sender: FDA-Public Use
  Company Number: US-PFIZER INC-2007039678

PATIENT
  Sex: Female
  Weight: 104.3 kg

DRUGS (6)
  1. CHANTIX [Suspect]
     Indication: SMOKING CESSATION THERAPY
     Route: 048
     Dates: start: 20070301
  2. CHANTIX [Suspect]
     Indication: TOBACCO USER
  3. LIPITOR [Concomitant]
     Dosage: DAILY
  4. OMEPRAZOLE [Concomitant]
     Dosage: DAILY
  5. LISINOPRIL [Concomitant]
     Dosage: DAILY
  6. HYDROCHLOROTHIAZIDE [Concomitant]
     Dosage: DAILY

REACTIONS (5)
  - FLATULENCE [None]
  - MUSCULOSKELETAL DISCOMFORT [None]
  - NAUSEA [None]
  - NICOTINE DEPENDENCE [None]
  - SWELLING [None]
